FAERS Safety Report 7691850-7 (Version None)
Quarter: 2011Q3

REPORT INFORMATION
  Report Type: 
  Country: None (occurrence: None)
  Receive Date: 20110818
  Receipt Date: 20110808
  Transmission Date: 20111222
  Serious: Yes (Death, Life-Threatening, Hospitalization)
  Sender: FDA-Public Use
  Company Number: JP-JNJFOC-20100806327

PATIENT
  Age: 77 Year
  Sex: Male
  Weight: 49 kg

DRUGS (7)
  1. REMICADE [Suspect]
     Route: 042
     Dates: start: 20100713
  2. REMICADE [Suspect]
     Indication: PSORIASIS
     Dosage: 2ND DOSE
     Route: 042
     Dates: start: 20100727
  3. ANTEBATE [Concomitant]
     Route: 061
     Dates: end: 20100813
  4. DOVONEX [Concomitant]
     Route: 061
     Dates: end: 20100813
  5. DOVONEX [Concomitant]
     Indication: PSORIASIS
     Route: 061
     Dates: start: 20100820
  6. ANTEBATE [Concomitant]
     Indication: PSORIASIS
     Route: 061
     Dates: start: 20100820
  7. ISONIAZID [Concomitant]
     Indication: ANTIBIOTIC PROPHYLAXIS
     Dates: start: 20100628

REACTIONS (5)
  - MALIGNANT PLEURAL EFFUSION [None]
  - LUNG ADENOCARCINOMA [None]
  - RASH PUSTULAR [None]
  - STREPTOCOCCUS TEST POSITIVE [None]
  - MENINGITIS BACTERIAL [None]
